FAERS Safety Report 13119950 (Version 1)
Quarter: 2017Q1

REPORT INFORMATION
  Report Type: Spontaneous
  Country: US (occurrence: US)
  Receive Date: 20170117
  Receipt Date: 20170117
  Transmission Date: 20170428
  Serious: Yes (Death, Other)
  Sender: FDA-Public Use
  Company Number: US-APOTEX-2017AP005194

PATIENT
  Age: 11 Month
  Sex: Male

DRUGS (5)
  1. FENTANYL. [Suspect]
     Active Substance: FENTANYL
     Indication: PRODUCT USED FOR UNKNOWN INDICATION
     Route: 048
  2. FENTANYL. [Suspect]
     Active Substance: FENTANYL
     Route: 048
  3. FENTANYL. [Suspect]
     Active Substance: FENTANYL
     Route: 048
  4. HEROIN [Suspect]
     Active Substance: DIACETYLMORPHINE
     Route: 048
  5. HEROIN [Suspect]
     Active Substance: DIACETYLMORPHINE
     Indication: PRODUCT USED FOR UNKNOWN INDICATION
     Route: 048

REACTIONS (2)
  - Cardio-respiratory arrest [Fatal]
  - Accidental exposure to product [Fatal]
